FAERS Safety Report 16490950 (Version 1)
Quarter: 2019Q2

REPORT INFORMATION
  Report Type: Spontaneous
  Country: CN (occurrence: CN)
  Receive Date: 20190628
  Receipt Date: 20190628
  Transmission Date: 20190711
  Serious: Yes (Other)
  Sender: FDA-Public Use
  Company Number: CN-ASTRAZENECA-2019SE83540

PATIENT
  Sex: Female

DRUGS (2)
  1. IRESSA [Suspect]
     Active Substance: GEFITINIB
     Indication: NON-SMALL CELL LUNG CANCER
     Route: 048
     Dates: start: 20161215
  2. TAGRISSO [Suspect]
     Active Substance: OSIMERTINIB
     Route: 048

REACTIONS (3)
  - Malignant neoplasm progression [Unknown]
  - Drug ineffective [Unknown]
  - Drug resistance [Unknown]
